FAERS Safety Report 4850775-2 (Version None)
Quarter: 2005Q4

REPORT INFORMATION
  Report Type: 
  Country: None (occurrence: None)
  Receive Date: 20051212
  Receipt Date: 20050919
  Transmission Date: 20060501
  Serious: Yes (Death, Hospitalization)
  Sender: FDA-Public Use
  Company Number: 200513300EU

PATIENT
  Age: 81 Year
  Sex: Female

DRUGS (7)
  1. ALTACE [Suspect]
     Indication: DRUG USE FOR UNKNOWN INDICATION
     Route: 048
  2. FUROSEMIDE [Suspect]
     Indication: DRUG USE FOR UNKNOWN INDICATION
     Route: 042
  3. NITROGLYCERIN [Suspect]
     Indication: CARDIAC FAILURE
  4. CELECOXIB [Suspect]
     Indication: DRUG USE FOR UNKNOWN INDICATION
  5. CELECOXIB [Suspect]
  6. CIPROFLOXACIN [Suspect]
     Indication: RESPIRATORY TRACT INFECTION
  7. AMOXICILLIN AND CLAVULANATE POTASSIUM [Suspect]
     Indication: RESPIRATORY TRACT INFECTION

REACTIONS (8)
  - CARDIOGENIC SHOCK [None]
  - DEHYDRATION [None]
  - HAEMODIALYSIS [None]
  - NEPHROPATHY TOXIC [None]
  - RENAL FAILURE ACUTE [None]
  - SOMNOLENCE [None]
  - TUBULOINTERSTITIAL NEPHRITIS [None]
  - VASCULITIS [None]
